FAERS Safety Report 4714594-X (Version None)
Quarter: 2005Q3

REPORT INFORMATION
  Report Type: 
  Country: None (occurrence: None)
  Receive Date: 20050714
  Receipt Date: 20050714
  Transmission Date: 20060218
  Serious: Yes (Other)
  Sender: FDA-Public Use
  Company Number: None

PATIENT
  Age: 10 Year
  Sex: Female
  Weight: 29 kg

DRUGS (2)
  1. KLONOPIN [Suspect]
     Indication: EPILEPSY
     Dosage: 1 1/4 TID
  2. KLONOPIN [Suspect]
     Indication: LENNOX-GASTAUT SYNDROME
     Dosage: 1 1/4 TID

REACTIONS (2)
  - IRRITABILITY [None]
  - SCREAMING [None]
